FAERS Safety Report 8315619-5 (Version None)
Quarter: 2012Q2

REPORT INFORMATION
  Report Type: 
  Country: None (occurrence: None)
  Receive Date: 20120426
  Receipt Date: 20120423
  Transmission Date: 20120825
  Serious: Yes (Other)
  Sender: FDA-Public Use
  Company Number: CN-ROCHE-1062213

PATIENT
  Age: 72 Year
  Sex: Male
  Weight: 52 kg

DRUGS (9)
  1. MABTHERA [Suspect]
     Indication: DIFFUSE LARGE B-CELL LYMPHOMA
     Route: 041
     Dates: start: 20080101
  2. CYCLOPHOSPHAMIDE [Concomitant]
     Route: 041
     Dates: start: 20110701
  3. VINCRISTINE [Concomitant]
     Indication: DIFFUSE LARGE B-CELL LYMPHOMA
     Route: 041
     Dates: start: 20080101
  4. MABTHERA [Suspect]
     Route: 041
     Dates: start: 20101201
  5. CYCLOPHOSPHAMIDE [Concomitant]
     Route: 041
     Dates: start: 20101201
  6. PIRARUBICIN [Concomitant]
     Indication: DIFFUSE LARGE B-CELL LYMPHOMA
     Route: 041
     Dates: start: 20080101
  7. ETOPOSIDE [Concomitant]
     Route: 041
     Dates: start: 20110701
  8. CYCLOPHOSPHAMIDE [Concomitant]
     Indication: DIFFUSE LARGE B-CELL LYMPHOMA
     Route: 041
     Dates: start: 20080101
  9. ETOPOSIDE [Concomitant]
     Indication: DIFFUSE LARGE B-CELL LYMPHOMA
     Route: 041
     Dates: start: 20101201

REACTIONS (3)
  - DIARRHOEA [None]
  - PYREXIA [None]
  - LYMPHOMA [None]
